FAERS Safety Report 6132974-5 (Version None)
Quarter: 2009Q1

REPORT INFORMATION
  Report Type: 
  Country: None (occurrence: None)
  Receive Date: 20090326
  Receipt Date: 20090317
  Transmission Date: 20090719
  Serious: Yes (Other)
  Sender: FDA-Public Use
  Company Number: TW-JNJFOC-20090304945

PATIENT
  Age: 37 Year
  Sex: Male

DRUGS (4)
  1. RISPERIDONE [Suspect]
     Indication: SCHIZOPHRENIA
     Route: 048
  2. OLANZAPINE [Suspect]
     Indication: SCHIZOPHRENIA
     Route: 065
  3. QUETIAPINE FUMARATE [Suspect]
     Indication: SCHIZOPHRENIA
     Route: 065
  4. CLOZAPINE [Suspect]
     Indication: SCHIZOPHRENIA
     Route: 065

REACTIONS (8)
  - ABNORMAL BEHAVIOUR [None]
  - ALCOHOL ABUSE [None]
  - FATIGUE [None]
  - PARANOIA [None]
  - PSYCHOTIC DISORDER [None]
  - SLEEP DISORDER [None]
  - SOMNOLENCE [None]
  - SUSPICIOUSNESS [None]
